FAERS Safety Report 7277556-7 (Version None)
Quarter: 2011Q1

REPORT INFORMATION
  Report Type: 
  Country: None (occurrence: None)
  Receive Date: 20110207
  Receipt Date: 20110124
  Transmission Date: 20110831
  Serious: Yes (Hospitalization, Other)
  Sender: FDA-Public Use
  Company Number: CH-GENZYME-POMP-1000908

PATIENT
  Sex: Female
  Weight: 42 kg

DRUGS (3)
  1. PANTOZOL [Concomitant]
     Indication: PREMEDICATION
     Dosage: 20 MG, UNK
  2. CLEMASTINE FUMARATE [Concomitant]
     Indication: PREMEDICATION
     Dosage: 1 MG, UNK
  3. MYOZYME [Suspect]
     Indication: GLYCOGEN STORAGE DISEASE TYPE II
     Dosage: 20 MG/KG, Q2W
     Route: 042
     Dates: start: 20070612

REACTIONS (5)
  - GLOMERULONEPHRITIS MEMBRANOUS [None]
  - RASH [None]
  - NEPHROTIC SYNDROME [None]
  - DYSPEPSIA [None]
  - CHILLS [None]
